FAERS Safety Report 20527599 (Version 1)
Quarter: 2022Q1

REPORT INFORMATION
  Report Type: Spontaneous
  Country: US (occurrence: None)
  Receive Date: 20220228
  Receipt Date: 20220228
  Transmission Date: 20220423
  Serious: Yes (Hospitalization, Disabling)
  Sender: FDA-Public Use
  Company Number: None

PATIENT
  Age: 47 Year
  Sex: Female
  Weight: 108 kg

DRUGS (1)
  1. MYCOPHENOLIC ACID [Suspect]
     Active Substance: MYCOPHENOLIC ACID
     Indication: Hepatic enzyme increased
     Dosage: OTHER QUANTITY : 3 CAPSULE(S);?FREQUENCY : TWICE A DAY;?
     Route: 048
     Dates: start: 20210601

REACTIONS (14)
  - Dry mouth [None]
  - Abdominal pain upper [None]
  - Asthenia [None]
  - Anxiety [None]
  - Nausea [None]
  - Vomiting [None]
  - Urinary incontinence [None]
  - Constipation [None]
  - Fluid retention [None]
  - Melaena [None]
  - Cough [None]
  - Skin discolouration [None]
  - Heavy menstrual bleeding [None]
  - Therapy change [None]

NARRATIVE: CASE EVENT DATE: 20220201
